FAERS Safety Report 10515041 (Version 1)
Quarter: 2014Q4

REPORT INFORMATION
  Report Type: Spontaneous
  Country: FR (occurrence: FR)
  Receive Date: 20141013
  Receipt Date: 20141013
  Transmission Date: 20150528
  Serious: Yes (Hospitalization)
  Sender: FDA-Public Use
  Company Number: FR-BRISTOL-MYERS SQUIBB COMPANY-21482930

PATIENT
  Age: 101 Year
  Sex: Female

DRUGS (6)
  1. DIFFU-K [Concomitant]
     Active Substance: POTASSIUM CHLORIDE
  2. COUMADINE [Suspect]
     Active Substance: WARFARIN SODIUM
     Route: 048
     Dates: end: 20140623
  3. COVERSYL [Concomitant]
     Active Substance: PERINDOPRIL
  4. CARDENSIEL [Concomitant]
     Active Substance: BISOPROLOL FUMARATE
  5. HEMIGOXINE NATIVELLE [Concomitant]
     Active Substance: DIGOXIN
  6. LASILIX [Concomitant]
     Active Substance: FUROSEMIDE

REACTIONS (4)
  - Subdural haematoma [Unknown]
  - Fall [Unknown]
  - Epistaxis [Unknown]
  - Craniocerebral injury [Unknown]

NARRATIVE: CASE EVENT DATE: 2014
